FAERS Safety Report 6852160-0 (Version None)
Quarter: 2010Q3

REPORT INFORMATION
  Report Type: 
  Country: None (occurrence: None)
  Receive Date: 20100717
  Receipt Date: 20080122
  Transmission Date: 20110219
  Serious: No
  Sender: FDA-Public Use
  Company Number: US-PFIZER INC-2007092620

PATIENT
  Sex: Female
  Weight: 54.4 kg

DRUGS (4)
  1. CHANTIX [Suspect]
     Indication: SMOKING CESSATION THERAPY
     Dates: start: 20071001, end: 20071030
  2. NEURONTIN [Concomitant]
     Dates: start: 19950101
  3. TYLENOL [Concomitant]
  4. CODEINE [Concomitant]

REACTIONS (3)
  - MALAISE [None]
  - UNDERDOSE [None]
  - VOMITING [None]
